FAERS Safety Report 9830170 (Version 1)
Quarter: 2014Q1

REPORT INFORMATION
  Report Type: Spontaneous
  Country: ZA (occurrence: ZA)
  Receive Date: 20140120
  Receipt Date: 20140120
  Transmission Date: 20141002
  Serious: Yes (Other)
  Sender: FDA-Public Use
  Company Number: ZA-DRREDDYS-SAF/SAF/14/0037028

PATIENT
  Sex: Female

DRUGS (1)
  1. DERMAX 250 [Suspect]
     Indication: OFF LABEL USE

REACTIONS (2)
  - Intentional drug misuse [Unknown]
  - Off label use [None]
